FAERS Safety Report 9193583 (Version 3)
Quarter: 2013Q2

REPORT INFORMATION
  Report Type: Spontaneous
  Country: US (occurrence: US)
  Receive Date: 20130327
  Receipt Date: 20130416
  Transmission Date: 20140414
  Serious: Yes (Other)
  Sender: FDA-Public Use
  Company Number: US-ABBOTT-13P-163-1068410-00

PATIENT
  Age: 54 Year
  Sex: Male
  Weight: 75.82 kg

DRUGS (1)
  1. HUMIRA [Suspect]
     Indication: PSORIASIS
     Dates: end: 201209

REACTIONS (4)
  - B-cell lymphoma [Recovering/Resolving]
  - Psoriasis [Not Recovered/Not Resolved]
  - Lymphadenopathy [Recovered/Resolved]
  - Self esteem decreased [Not Recovered/Not Resolved]
